FAERS Safety Report 9647092 (Version 1)
Quarter: 2013Q4

REPORT INFORMATION
  Report Type: Spontaneous
  Country: US (occurrence: US)
  Receive Date: 20131027
  Receipt Date: 20131027
  Transmission Date: 20140711
  Serious: Yes (Other)
  Sender: FDA-Public Use
  Company Number: US-NAPPMUNDI-USA-2013-0105026

PATIENT
  Sex: Female

DRUGS (2)
  1. OXYCODONE HYDROCHLORIDE (SIMILAR TO NDA 22-272) [Suspect]
     Indication: DRUG DEPENDENCE
  2. COCAINE [Suspect]
     Indication: SUBSTANCE ABUSE
     Route: 065

REACTIONS (4)
  - Drug dependence [Recovered/Resolved]
  - Drug abuse [Recovered/Resolved]
  - Substance abuse [Recovered/Resolved]
  - Drug withdrawal syndrome [Recovered/Resolved]
